FAERS Safety Report 5084704-6 (Version None)
Quarter: 2006Q3

REPORT INFORMATION
  Report Type: 
  Country: None (occurrence: None)
  Receive Date: 20060814
  Receipt Date: 20060804
  Transmission Date: 20061208
  Serious: Yes (Hospitalization)
  Sender: FDA-Public Use
  Company Number: FRWYE522404AUG06

PATIENT
  Age: 37 Year
  Sex: Female

DRUGS (3)
  1. EFFEXOR [Suspect]
     Dosage: 100 MG TOTAL DAILY ORAL
     Route: 048
     Dates: start: 20030101
  2. IMOVANE (ZOPICLONE, , 0) [Suspect]
     Dosage: 1 TABLET 1X PER 1 DAY ORAL
     Route: 048
     Dates: start: 20030101
  3. SOLIAN (AMISULPRIDE, , 0) [Suspect]
     Dosage: 200 MG TOTLA DAILY ORAL
     Route: 048
     Dates: start: 20030101

REACTIONS (2)
  - BURNS SECOND DEGREE [None]
  - PHOTOSENSITIVITY REACTION [None]
